FAERS Safety Report 8352204-3 (Version None)
Quarter: 2012Q2

REPORT INFORMATION
  Report Type: 
  Country: None (occurrence: None)
  Receive Date: 20120511
  Receipt Date: 20120507
  Transmission Date: 20120825
  Serious: No
  Sender: FDA-Public Use
  Company Number: US-PFIZER INC-2012095417

PATIENT
  Sex: Female
  Weight: 59 kg

DRUGS (3)
  1. RAPAMUNE [Suspect]
     Dosage: 2MG (MONDAY,WEDNESDAY,FRIDAY,SUNDAY)
     Route: 048
     Dates: start: 20110101
  2. RAPAMUNE [Suspect]
     Dosage: 3MG (TUESDAY,THURSDAY, SATURDAY)
     Route: 048
     Dates: start: 20110101
  3. RAPAMUNE [Suspect]
     Indication: LIVER TRANSPLANT REJECTION
     Dosage: 1MG ORAL TABLET TWO TIMES A DAY AND THREE TIMES A DAY ALTERNATELY
     Dates: start: 20090301

REACTIONS (1)
  - DRUG LEVEL INCREASED [None]
